FAERS Safety Report 18381704 (Version 1)
Quarter: 2020Q4

REPORT INFORMATION
  Report Type: Spontaneous
  Country: GB (occurrence: GB)
  Receive Date: 20201014
  Receipt Date: 20201014
  Transmission Date: 20210114
  Serious: Yes (Hospitalization)
  Sender: FDA-Public Use
  Company Number: GB-TEVA-2020-GB-1837632

PATIENT
  Age: 73 Year
  Sex: Female
  Weight: 98 kg

DRUGS (11)
  1. LANSOPRAZOLE. [Concomitant]
     Active Substance: LANSOPRAZOLE
  2. CO-AMILOFRUSE [Concomitant]
     Active Substance: AMILORIDE\FUROSEMIDE
  3. AMLODIPINE [Concomitant]
     Active Substance: AMLODIPINE BESYLATE
  4. ZOPICLONE [Concomitant]
     Active Substance: ZOPICLONE
  5. IBUPROFEN. [Suspect]
     Active Substance: IBUPROFEN
     Indication: ARTHRALGIA
     Dosage: 1200 MILLIGRAM DAILY;
     Route: 048
  6. AMITRIPTYLINE [Concomitant]
     Active Substance: AMITRIPTYLINE
  7. COCODAMOL [Concomitant]
     Active Substance: ACETAMINOPHEN\CODEINE PHOSPHATE
  8. CYCLIZINE LACTATE [Concomitant]
     Active Substance: CYCLIZINE LACTATE
  9. MORPHINE [Concomitant]
     Active Substance: MORPHINE
  10. ATENOLOL. [Concomitant]
     Active Substance: ATENOLOL
  11. SUMATRIPTAN SUCCINATE. [Concomitant]
     Active Substance: SUMATRIPTAN SUCCINATE

REACTIONS (3)
  - Dizziness [Unknown]
  - Upper gastrointestinal haemorrhage [Recovering/Resolving]
  - Faeces discoloured [Unknown]
